FAERS Safety Report 15298604 (Version 1)
Quarter: 2018Q3

REPORT INFORMATION
  Report Type: Spontaneous
  Country: CH (occurrence: CH)
  Receive Date: 20180820
  Receipt Date: 20180820
  Transmission Date: 20181010
  Serious: Yes (Death)
  Sender: FDA-Public Use
  Company Number: CH-NAPPMUNDI-GBR-2017-0051610

PATIENT
  Age: 88 Year
  Sex: Female

DRUGS (27)
  1. OXYNORM [Suspect]
     Active Substance: OXYCODONE HYDROCHLORIDE
     Indication: PAIN
     Dosage: 2 MG, Q4H [2 MG 1X/4H ]
     Route: 065
     Dates: start: 20171002, end: 20171006
  2. MORPHINE HCL [Suspect]
     Active Substance: MORPHINE HYDROCHLORIDE
     Dosage: 2.5 MG, Q4H
     Route: 048
     Dates: start: 20170929, end: 20170929
  3. DAFALGAN [Concomitant]
     Active Substance: ACETAMINOPHEN
     Dosage: UNK
     Dates: start: 20170928, end: 20171010
  4. AUGMENTIN [Concomitant]
     Active Substance: AMOXICILLIN\CLAVULANATE POTASSIUM
     Dosage: UNK
     Dates: start: 20171011
  5. TRAMADOL. [Concomitant]
     Active Substance: TRAMADOL
     Dosage: UNK
     Dates: end: 201710
  6. OXYNORM [Suspect]
     Active Substance: OXYCODONE HYDROCHLORIDE
     Dosage: 3 MG, PRN [1 MG X3/DAY AS NEEDED]
     Route: 065
     Dates: end: 20171010
  7. OXYNORM [Suspect]
     Active Substance: OXYCODONE HYDROCHLORIDE
     Dosage: 1.5 MG, Q4H [1.5 MG 1X/4H ]
     Route: 065
     Dates: start: 20171001, end: 20171001
  8. BELOC ZOK [Suspect]
     Active Substance: METOPROLOL SUCCINATE
     Indication: ARRHYTHMIA
     Dosage: 1 DF, DAILY [STRENGTH 25MG]
     Route: 048
     Dates: end: 20171010
  9. QUETIAPIN ACTAVIS [Suspect]
     Active Substance: QUETIAPINE
     Indication: AGITATION
     Dosage: 12.5 MG, DAILY (BEDTIME)
     Route: 048
  10. RIOPAN                             /00141701/ [Concomitant]
     Active Substance: MAGALDRATE
     Dosage: UNK
     Dates: end: 20171010
  11. ASPIRIN CARDIO [Suspect]
     Active Substance: ASPIRIN
     Indication: PROPHYLAXIS
     Dosage: 1 DF, DAILY [STRENGTH 100MG]
     Route: 048
     Dates: end: 20171010
  12. QUETIAPIN ACTAVIS [Suspect]
     Active Substance: QUETIAPINE
     Indication: ANXIETY
     Dosage: 12.5 MG 1X/DAY AT BEDTIME + 1X/DAY AS NEEDED
     Route: 048
     Dates: start: 20170929, end: 20171011
  13. MORPHINE HCL [Suspect]
     Active Substance: MORPHINE HYDROCHLORIDE
     Indication: PAIN
     Dosage: 3 DF, UNK
     Route: 048
     Dates: start: 20170929, end: 20170929
  14. LISINOPRIL. [Suspect]
     Active Substance: LISINOPRIL
     Indication: HYPERTENSION
     Dosage: 1 DF, DAILY [STRENGTH 5 MG]
     Route: 048
     Dates: end: 20171010
  15. PROPAFENONE HCL [Concomitant]
     Active Substance: PROPAFENONE HYDROCHLORIDE
     Dosage: UNK
     Dates: end: 20171010
  16. URISPAS [Concomitant]
     Active Substance: FLAVOXATE HYDROCHLORIDE
     Dosage: UNK
     Dates: end: 20171010
  17. MYSOLINE [Concomitant]
     Active Substance: PRIMIDONE
     Dosage: UNK
     Dates: end: 20171010
  18. SYMFONA N [Concomitant]
     Indication: COGNITIVE DISORDER
     Dosage: 1 DF, DAILY
     Dates: end: 20170928
  19. VI?DE 3 [Concomitant]
     Active Substance: CHOLECALCIFEROL
     Dosage: UNK
     Dates: start: 20170928, end: 20171010
  20. DANCOR [Suspect]
     Active Substance: NICORANDIL
     Indication: PRODUCT USED FOR UNKNOWN INDICATION
     Dosage: UNK
     Route: 048
     Dates: end: 20171010
  21. PURSANA [Concomitant]
     Active Substance: FIG FRUIT OIL\SORBITOL
     Dosage: UNK
     Dates: start: 20170929, end: 20171010
  22. OXYCODONE HYDROCHLORIDE. [Concomitant]
     Active Substance: OXYCODONE HYDROCHLORIDE
     Dosage: UNK
     Dates: start: 20171006, end: 20171010
  23. HALDOL [Concomitant]
     Active Substance: HALOPERIDOL
     Dosage: UNK, PRN
     Dates: start: 20170928, end: 20171001
  24. CLEXANE [Concomitant]
     Active Substance: ENOXAPARIN SODIUM
     Dosage: 40 MG, DAILY [40 MG 1X/DAY]
     Route: 058
     Dates: start: 20170928, end: 20171006
  25. OXYNORM [Suspect]
     Active Substance: OXYCODONE HYDROCHLORIDE
     Dosage: 1 MG, Q4H [1 MG 1X/4H P.O.]
     Route: 048
     Dates: start: 20170930, end: 20171001
  26. PRAVASTATINE [Concomitant]
     Active Substance: PRAVASTATIN
     Dosage: UNK
     Dates: end: 20171010
  27. LAXOBERON [Concomitant]
     Active Substance: SODIUM PICOSULFATE
     Dosage: UNK UNK, PRN
     Dates: start: 20170929, end: 20171010

REACTIONS (2)
  - Cerebral haemorrhage [Fatal]
  - Orthostatic hypotension [Not Recovered/Not Resolved]

NARRATIVE: CASE EVENT DATE: 201709
